FAERS Safety Report 6111391-8 (Version None)
Quarter: 2009Q1

REPORT INFORMATION
  Report Type: 
  Country: None (occurrence: None)
  Receive Date: 20090311
  Receipt Date: 20090302
  Transmission Date: 20090719
  Serious: Yes (Hospitalization)
  Sender: FDA-Public Use
  Company Number: D0060695A

PATIENT
  Age: 68 Year
  Sex: Male

DRUGS (10)
  1. PAROXETINE HCL [Suspect]
     Indication: DEPRESSION
     Dosage: 20MG PER DAY
     Route: 048
  2. FURORESE [Suspect]
     Dosage: 20MG THREE TIMES PER DAY
     Route: 048
     Dates: end: 20081030
  3. ACTRAPID PEN (INSULIN) [Concomitant]
     Dosage: 34IU PER DAY
     Route: 058
  4. ALLOPURINOL [Concomitant]
     Dosage: 100MG PER DAY
     Route: 048
  5. CONCOR [Concomitant]
     Dosage: 5MG PER DAY
     Route: 048
  6. FRISIUM [Concomitant]
     Indication: EPILEPSY
     Dosage: 10MG THREE TIMES PER DAY
     Route: 048
  7. NEURONTIN [Concomitant]
     Indication: EPILEPSY
     Dosage: 300MG THREE TIMES PER DAY
     Route: 048
  8. NEXIUM [Concomitant]
     Indication: CORONARY ARTERY DISEASE
     Dosage: 40MG PER DAY
     Route: 048
  9. PLAVIX [Concomitant]
     Indication: CORONARY ARTERY DISEASE
     Dosage: 75MG PER DAY
     Route: 048
  10. TIZANIDINE HCL [Concomitant]
     Indication: CEREBRAL INFARCTION
     Dosage: 6MG THREE TIMES PER DAY
     Route: 048

REACTIONS (2)
  - DRUG INTERACTION [None]
  - HYPONATRAEMIA [None]
